FAERS Safety Report 4975908-9 (Version None)
Quarter: 2006Q2

REPORT INFORMATION
  Report Type: 
  Country: None (occurrence: None)
  Receive Date: 20060418
  Receipt Date: 20050621
  Transmission Date: 20061013
  Serious: Yes (Disabling, Other)
  Sender: FDA-Public Use
  Company Number: US-MERCK-0506USA03205

PATIENT
  Age: 75 Year
  Sex: Male

DRUGS (1)
  1. VIOXX [Suspect]
     Indication: ARTHRITIS
     Route: 048
     Dates: start: 20030201, end: 20031024

REACTIONS (4)
  - CARDIAC DISORDER [None]
  - CARDIAC FAILURE [None]
  - EYE DISORDER [None]
  - MYOCARDIAL INFARCTION [None]
